FAERS Safety Report 18104270 (Version 1)
Quarter: 2020Q3

REPORT INFORMATION
  Report Type: Report from Study
  Country: FR (occurrence: FR)
  Receive Date: 20200803
  Receipt Date: 20200803
  Transmission Date: 20201103
  Serious: Yes (Death, Life-Threatening, Hospitalization)
  Sender: FDA-Public Use
  Company Number: FR-MYLANLABS-2020M1068035

PATIENT
  Age: 75 Year
  Sex: Female
  Weight: 72 kg

DRUGS (2)
  1. IBRANCE [Suspect]
     Active Substance: PALBOCICLIB
     Indication: BREAST CANCER METASTATIC
     Dosage: 75 MG
     Route: 048
     Dates: start: 20170918, end: 20190606
  2. LETROZOLE. [Suspect]
     Active Substance: LETROZOLE
     Indication: BREAST CANCER METASTATIC
     Dosage: UNK
     Route: 065
     Dates: start: 20170918, end: 20190606

REACTIONS (6)
  - Nervous system disorder [Fatal]
  - Thrombocytopenia [Fatal]
  - Renal failure [Unknown]
  - Paraneoplastic syndrome [Fatal]
  - Purpura [Unknown]
  - Haemolytic anaemia [Fatal]

NARRATIVE: CASE EVENT DATE: 201905
